FAERS Safety Report 25204895 (Version 1)
Quarter: 2025Q2

REPORT INFORMATION
  Report Type: Spontaneous
  Country: GR (occurrence: GR)
  Receive Date: 20250416
  Receipt Date: 20250416
  Transmission Date: 20250717
  Serious: Yes (Other)
  Sender: BRISTOL MYERS SQUIBB
  Company Number: GR-BRISTOL-MYERS SQUIBB COMPANY-2025-055189

PATIENT
  Age: 91 Year
  Sex: Female
  Weight: 57 kg

DRUGS (3)
  1. ELIQUIS [Suspect]
     Active Substance: APIXABAN
     Indication: Atrial fibrillation
     Dosage: ONE IN THE MORNING AND ONE IN THE EVENING
     Dates: start: 202312
  2. ELIQUIS [Suspect]
     Active Substance: APIXABAN
     Indication: Cardiac failure
  3. PENRAZOL [OMEPRAZOLE] [Concomitant]
     Indication: Product used for unknown indication
     Dosage: IN THE MORNING AND EVENING

REACTIONS (3)
  - Wound [Unknown]
  - Impaired healing [Unknown]
  - Urethral disorder [Unknown]
